FAERS Safety Report 6894941-3 (Version None)
Quarter: 2010Q3

REPORT INFORMATION
  Report Type: 
  Country: None (occurrence: None)
  Receive Date: 20100802
  Receipt Date: 20100722
  Transmission Date: 20110219
  Serious: Yes (Other)
  Sender: FDA-Public Use
  Company Number: FR-TEVA-237511ISR

PATIENT
  Age: 74 Year
  Sex: Male

DRUGS (2)
  1. AZILECT [Suspect]
     Route: 048
     Dates: start: 20100326, end: 20100426
  2. STALEVO 100 [Concomitant]
     Route: 048
     Dates: start: 20100426, end: 20100502

REACTIONS (2)
  - HEPATITIS CHOLESTATIC [None]
  - PURPURA [None]
